FAERS Safety Report 6678859-7 (Version None)
Quarter: 2010Q2

REPORT INFORMATION
  Report Type: 
  Country: None (occurrence: None)
  Receive Date: 20100408
  Receipt Date: 20100401
  Transmission Date: 20101027
  Serious: Yes (Life-Threatening)
  Sender: FDA-Public Use
  Company Number: 2010EU001315

PATIENT
  Age: 7 Year
  Sex: Female
  Weight: 20 kg

DRUGS (1)
  1. PROGRAF [Suspect]
     Indication: LIVER TRANSPLANT
     Dosage: 1.3 MG, BID, ORAL; 1 MG, BID, ORAL
     Route: 048
     Dates: start: 20080101

REACTIONS (3)
  - APPARENT LIFE THREATENING EVENT [None]
  - RENAL IMPAIRMENT [None]
  - SEPTIC SHOCK [None]
